FAERS Safety Report 24065809 (Version 1)
Quarter: 2024Q3

REPORT INFORMATION
  Report Type: Spontaneous
  Country: AU (occurrence: AU)
  Receive Date: 20240709
  Receipt Date: 20240709
  Transmission Date: 20241016
  Serious: Yes (Other)
  Sender: PFIZER
  Company Number: AU-TAKEDA-2024TUS066303

PATIENT
  Age: 75 Year
  Sex: Male

DRUGS (2)
  1. PROTONIX [Suspect]
     Active Substance: PANTOPRAZOLE SODIUM
     Dosage: UNK
     Route: 065
  2. CEFTRIAXONE SODIUM [Suspect]
     Active Substance: CEFTRIAXONE SODIUM
     Indication: Gastrointestinal haemorrhage
     Dosage: 2 GRAM
     Route: 065
     Dates: start: 20240413

REACTIONS (3)
  - Anaphylactic reaction [Not Recovered/Not Resolved]
  - Erythema [Unknown]
  - Hypotension [Unknown]

NARRATIVE: CASE EVENT DATE: 20240413
